FAERS Safety Report 23294773 (Version 1)
Quarter: 2023Q4

REPORT INFORMATION
  Report Type: Spontaneous
  Country: US (occurrence: US)
  Receive Date: 20231213
  Receipt Date: 20231213
  Transmission Date: 20240110
  Serious: Yes (Disabling, Other)
  Sender: FDA-Public Use
  Company Number: US-Merck Healthcare KGaA-2023492971

PATIENT
  Age: 36 Year
  Sex: Male
  Weight: 98 kg

DRUGS (3)
  1. MAVENCLAD [Suspect]
     Active Substance: CLADRIBINE
     Indication: Relapsing-remitting multiple sclerosis
     Dosage: YEAR ONE MONTH ONE THERAPY TAKEN AS 2 TABLETS FROM DAY 1 TO 3 AND ONE TABLET FROM DAY 4 AND 5.
     Route: 048
     Dates: start: 20221111, end: 20221115
  2. MAVENCLAD [Suspect]
     Active Substance: CLADRIBINE
     Dosage: YEAR ONE MONTH TWO THERAPY TAKEN AS 2 TABLETS FROM DAY 1 TO 3 AND ONE TABLET FROM DAY 4 AND 5.
     Route: 048
  3. WELLBUTRIN [Concomitant]
     Active Substance: BUPROPION HYDROCHLORIDE
     Indication: Product used for unknown indication

REACTIONS (2)
  - Multiple sclerosis relapse [Unknown]
  - Stress [Unknown]

NARRATIVE: CASE EVENT DATE: 20231205
